FAERS Safety Report 8252069-4 (Version None)
Quarter: 2012Q2

REPORT INFORMATION
  Report Type: 
  Country: None (occurrence: None)
  Receive Date: 20120402
  Receipt Date: 20110309
  Transmission Date: 20120825
  Serious: No
  Sender: FDA-Public Use
  Company Number: US-ABBOTT-11P-163-0804276-00

PATIENT
  Sex: Male
  Weight: 130 kg

DRUGS (8)
  1. CABERGOLINE [Concomitant]
     Indication: HYPOTHALAMO-PITUITARY DISORDER
     Dosage: DAILY DOSE:  UNKNOWN
     Route: 065
  2. LISINOPRIL [Concomitant]
     Indication: HYPERTENSION
     Dosage: DAILY DOSE:  UNKNOWN
     Route: 065
  3. TESTOSTERONE [Suspect]
     Indication: BLOOD TESTOSTERONE DECREASED
     Dosage: DAILY DOSE: 5 GRAM(S)
     Route: 062
     Dates: start: 20100301, end: 20110307
  4. HYDROXYZINE [Concomitant]
     Indication: PSORIASIS
     Dosage: DAILY DOSE:  UNKNOWN
     Route: 065
  5. FUROSEMIDE [Concomitant]
     Indication: FLUID RETENTION
     Dosage: DAILY DOSE:  UNKNOWN
     Route: 065
  6. TESTOSTERONE [Suspect]
     Dosage: DAILY DOSE: 7.5 GRAM(S)
     Route: 062
     Dates: start: 20110307
  7. HYDROXYZINE [Concomitant]
     Indication: PRURITUS
  8. ACETYLSALICYLIC ACID [Concomitant]
     Indication: PRODUCT USED FOR UNKNOWN INDICATION
     Dosage: DAILY DOSE:  UNKNOWN
     Route: 065

REACTIONS (3)
  - BLOOD GLUCOSE DECREASED [None]
  - BLOOD POTASSIUM DECREASED [None]
  - BLOOD TESTOSTERONE DECREASED [None]
